FAERS Safety Report 7555632-9 (Version None)
Quarter: 2011Q2

REPORT INFORMATION
  Report Type: 
  Country: None (occurrence: None)
  Receive Date: 20110617
  Receipt Date: 20080909
  Transmission Date: 20111010
  Serious: Yes (Other)
  Sender: FDA-Public Use
  Company Number: PHHY2008CA18458

PATIENT
  Sex: Male

DRUGS (2)
  1. SANDOSTATIN [Suspect]
     Indication: NEUROENDOCRINE CARCINOMA
     Dosage: 20 MG ONCE IN A MONTH.
     Route: 030
     Dates: start: 20071126
  2. NOVOTRIMEL [Concomitant]
     Dosage: 1 DF, BID
     Route: 048

REACTIONS (2)
  - SYNCOPE [None]
  - PYREXIA [None]
